FAERS Safety Report 25271929 (Version 2)
Quarter: 2025Q2

REPORT INFORMATION
  Report Type: Spontaneous
  Country: US (occurrence: US)
  Receive Date: 20250506
  Receipt Date: 20250609
  Transmission Date: 20250716
  Serious: No
  Sender: MERCK SHARP & DOHME LLC
  Company Number: US-009507513-2282165

PATIENT
  Age: 61 Year
  Sex: Male
  Weight: 81.6 kg

DRUGS (15)
  1. WINREVAIR [Suspect]
     Active Substance: SOTATERCEPT-CSRK
     Dates: start: 202504
  2. WINREVAIR [Suspect]
     Active Substance: SOTATERCEPT-CSRK
  3. WINREVAIR [Suspect]
     Active Substance: SOTATERCEPT-CSRK
  4. WINREVAIR [Suspect]
     Active Substance: SOTATERCEPT-CSRK
  5. TYVASO [Suspect]
     Active Substance: TREPROSTINIL
     Indication: Pulmonary arterial hypertension
     Dosage: 72 UG, 4 TIMES A DAY, CONCENTRATION OF 0.6 MG/ML, VIA INHALATION (IH) ROUTE
     Route: 055
     Dates: start: 20230912
  6. FUROSEMIDE [Concomitant]
     Active Substance: FUROSEMIDE
  7. XARELTO [Concomitant]
     Active Substance: RIVAROXABAN
  8. CLONAZEPAM [Concomitant]
     Active Substance: CLONAZEPAM
  9. PANTOPRAZOLE SODIUM [Concomitant]
     Active Substance: PANTOPRAZOLE SODIUM
  10. TYLENOL ARTHRITIS PAIN [Concomitant]
     Active Substance: ACETAMINOPHEN
  11. FLUTICASONE FUROATE\SALMETEROL XINAFOATE [Concomitant]
     Active Substance: FLUTICASONE FUROATE\SALMETEROL XINAFOATE
  12. LISINOPRIL [Concomitant]
     Active Substance: LISINOPRIL
  13. OXYGEN [Concomitant]
     Active Substance: OXYGEN
  14. AMBRISENTAN [Concomitant]
     Active Substance: AMBRISENTAN
  15. OPSUMIT [Suspect]
     Active Substance: MACITENTAN
     Dates: start: 2023

REACTIONS (1)
  - Headache [Not Recovered/Not Resolved]

NARRATIVE: CASE EVENT DATE: 20250401
